FAERS Safety Report 8047449 (Version 2)
Quarter: 2014Q2

REPORT INFORMATION
  Report Type: Spontaneous
  Country: US (occurrence: US)
  Receive Date: 20110721
  Receipt Date: 20140527
  Transmission Date: 20141212
  Serious: Yes (Death, Hospitalization)
  Sender: FDA-Public Use
  Company Number: US-GLAXOSMITHKLINE-A0870920A

PATIENT
  Sex: Male
  Weight: 100 kg

DRUGS (6)
  1. AVANDIA [Suspect]
     Indication: DIABETES MELLITUS
     Dosage: 8MG PER DAY
     Route: 048
     Dates: start: 20000929, end: 200404
  2. CELEXA [Concomitant]
  3. TIAZAC [Concomitant]
  4. INSULIN [Concomitant]
  5. SEREVENT [Concomitant]
  6. FLOVENT [Concomitant]

REACTIONS (6)
  - Cardiac failure congestive [Fatal]
  - Cerebrovascular accident [Unknown]
  - Myocardial infarction [Unknown]
  - Cerebral infarction [Unknown]
  - Transient ischaemic attack [Unknown]
  - Pulmonary oedema [Unknown]
